FAERS Safety Report 9691344 (Version 1)
Quarter: 2013Q4

REPORT INFORMATION
  Report Type: Spontaneous
  Country: US (occurrence: US)
  Receive Date: 20131115
  Receipt Date: 20131115
  Transmission Date: 20140711
  Serious: Yes (Other)
  Sender: FDA-Public Use
  Company Number: US-BRISTOL-MYERS SQUIBB COMPANY-19790526

PATIENT
  Sex: Male

DRUGS (2)
  1. SUSTIVA [Suspect]
     Route: 065
  2. TRUVADA [Suspect]
     Route: 065

REACTIONS (1)
  - Blood creatinine increased [Unknown]
